FAERS Safety Report 4504880-0 (Version None)
Quarter: 2004Q4

REPORT INFORMATION
  Report Type: 
  Country: None (occurrence: None)
  Receive Date: 20040928
  Receipt Date: 20040709
  Transmission Date: 20050328
  Serious: No
  Sender: FDA-Public Use
  Company Number: 04P-163-0266674-00

PATIENT
  Age: 70 Year
  Sex: Female
  Weight: 77.1115 kg

DRUGS (11)
  1. HUMIRA [Suspect]
     Indication: RHEUMATOID ARTHRITIS
     Dosage: 40 MG, 1 IN 2 WEEK, SUBCUTANEOUS
     Route: 058
     Dates: start: 20040610
  2. COUMADIN [Concomitant]
  3. PREDNISONE [Concomitant]
  4. LEVOTHYROXINE SODIUM [Concomitant]
  5. ZOLPIDEM TARTRATE [Concomitant]
  6. CREON-20 [Concomitant]
  7. LESCOL XL [Concomitant]
  8. VERAPAMIL HYDROCHLORIDE [Concomitant]
  9. PROPACET 100 [Concomitant]
  10. TOCOPHEROL CONCENTRATE CAP [Concomitant]
  11. ASCORBIC ACID [Concomitant]

REACTIONS (1)
  - INJECTION SITE HAEMORRHAGE [None]
